FAERS Safety Report 21654962 (Version 2)
Quarter: 2022Q4

REPORT INFORMATION
  Report Type: Spontaneous
  Country: DK (occurrence: DK)
  Receive Date: 20221129
  Receipt Date: 20221208
  Transmission Date: 20230113
  Serious: Yes (Hospitalization)
  Sender: FDA-Public Use
  Company Number: DK-DKMA-WBS-1002252

PATIENT
  Age: 76 Year
  Sex: Female

DRUGS (6)
  1. SERTRALINE HYDROCHLORIDE [Suspect]
     Active Substance: SERTRALINE HYDROCHLORIDE
     Indication: Depression
     Dosage: 50 MILLIGRAM, AS NECESSARY ( 50 MG ONCE DAILY AS NECESSARY. STRENGTH: 50 MG)
     Route: 048
     Dates: start: 2018, end: 202211
  2. MINIRIN [Suspect]
     Active Substance: DESMOPRESSIN ACETATE
     Indication: Nocturia
     Dosage: 360 MICROGRAM, AS NECESSARY (DOSAGE: 360 ?G ONCE DAILY AS NECESSARY. STRENGTH: 120 ?G)
     Route: 060
     Dates: start: 20220717, end: 20221101
  3. ASPIRIN [Concomitant]
     Active Substance: ASPIRIN
     Indication: Anticoagulant therapy
     Dosage: UNK
     Route: 065
     Dates: start: 20090919
  4. Gabapenstad [Concomitant]
     Indication: Pain
     Dosage: UNK
     Route: 065
     Dates: start: 20170214
  5. ACETAMINOPHEN [Concomitant]
     Active Substance: ACETAMINOPHEN
     Indication: Pain
     Dosage: UNK
     Route: 065
     Dates: start: 20170214
  6. SIMVASTATIN [Concomitant]
     Active Substance: SIMVASTATIN
     Indication: Hypercholesterolaemia
     Dosage: UNK
     Route: 065
     Dates: start: 20190213

REACTIONS (3)
  - General physical health deterioration [Unknown]
  - Confusional state [Unknown]
  - Hyponatraemia [Recovered/Resolved]

NARRATIVE: CASE EVENT DATE: 20221001
